FAERS Safety Report 23024353 (Version 1)
Quarter: 2023Q4

REPORT INFORMATION
  Report Type: Spontaneous
  Country: JP (occurrence: None)
  Receive Date: 20231004
  Receipt Date: 20231004
  Transmission Date: 20240109
  Serious: Yes (Other)
  Sender: FDA-Public Use
  Company Number: 2023A213771

PATIENT
  Age: 75 Year
  Sex: Male

DRUGS (3)
  1. ROSUVASTATIN [Suspect]
     Active Substance: ROSUVASTATIN
     Route: 048
     Dates: start: 20230809
  2. NICORANDIL [Concomitant]
     Active Substance: NICORANDIL
  3. PRASUGREL HYDROCHLORIDE [Concomitant]
     Active Substance: PRASUGREL HYDROCHLORIDE

REACTIONS (4)
  - Tachycardia [Unknown]
  - Arteriospasm coronary [Unknown]
  - Coronary arterial stent insertion [Unknown]
  - Surgery [Unknown]
